FAERS Safety Report 15862666 (Version 3)
Quarter: 2019Q2

REPORT INFORMATION
  Report Type: Spontaneous
  Country: US (occurrence: US)
  Receive Date: 20190124
  Receipt Date: 20190530
  Transmission Date: 20190711
  Serious: Yes (Hospitalization)
  Sender: FDA-Public Use
  Company Number: US-PFIZER INC-2019019704

PATIENT
  Age: 88 Year
  Sex: Female
  Weight: 57 kg

DRUGS (2)
  1. FLECTOR [Suspect]
     Active Substance: DICLOFENAC EPOLAMINE
     Indication: BACK PAIN
     Dosage: 1 DF, 2X/DAY (EVERY 12 HOURS ON SKIN)
     Route: 062
     Dates: start: 201810
  2. TRAMADOL. [Concomitant]
     Active Substance: TRAMADOL
     Indication: BACK PAIN
     Dosage: 100 MG, 1X/DAY (IN THE MORNING)
     Route: 048

REACTIONS (4)
  - Pneumonia [Unknown]
  - Nasopharyngitis [Recovered/Resolved]
  - Atrioventricular block [Recovered/Resolved]
  - Drug ineffective [Unknown]

NARRATIVE: CASE EVENT DATE: 20190101
